FAERS Safety Report 7920807 (Version 4)
Quarter: 2013Q3

REPORT INFORMATION
  Report Type: Spontaneous
  Country: US (occurrence: US)
  Receive Date: 20110429
  Receipt Date: 20130830
  Transmission Date: 20140515
  Serious: Yes (Other)
  Sender: FDA-Public Use
  Company Number: US-ASTRAZENECA-2010SE16291

PATIENT
  Age: 56 Year
  Sex: Male
  Weight: 91.6 kg

DRUGS (12)
  1. NEXIUM [Suspect]
     Indication: GASTROOESOPHAGEAL REFLUX DISEASE
     Route: 048
     Dates: start: 2008
  2. PRILOSEC OTC [Suspect]
     Route: 048
     Dates: start: 2012, end: 2012
  3. METOPROLOL [Suspect]
     Indication: BLOOD PRESSURE ABNORMAL
     Route: 048
     Dates: start: 2008
  4. ROLAIDS [Concomitant]
  5. XANAX [Concomitant]
     Route: 048
     Dates: start: 2008
  6. ROXICODONE [Concomitant]
     Indication: PAIN
     Route: 048
     Dates: start: 201305
  7. CLOPIDOGREL [Concomitant]
     Indication: VASCULAR GRAFT
     Route: 048
     Dates: start: 201305
  8. ATORVASTATIN [Concomitant]
     Indication: BLOOD CHOLESTEROL ABNORMAL
     Route: 048
     Dates: start: 201305
  9. ASPIRIN [Concomitant]
     Route: 048
     Dates: start: 201305
  10. AMLODIPINE [Concomitant]
     Indication: BLOOD PRESSURE ABNORMAL
     Route: 048
     Dates: start: 2008
  11. VENTOLIN [Concomitant]
     Indication: BRONCHITIS
     Dosage: PRN
     Route: 055
  12. ADVAIR DISC [Concomitant]
     Indication: CHRONIC OBSTRUCTIVE PULMONARY DISEASE
     Dosage: 2 PUFFS DAILY
     Route: 055

REACTIONS (13)
  - Coronary artery disease [Unknown]
  - Adverse event [Unknown]
  - Feeling abnormal [Unknown]
  - Gastrooesophageal reflux disease [Unknown]
  - Abdominal pain [Unknown]
  - Dizziness [Unknown]
  - Chronic obstructive pulmonary disease [Unknown]
  - Bronchitis chronic [Unknown]
  - Rheumatoid arthritis [Unknown]
  - Hypertension [Unknown]
  - Blood cholesterol increased [Unknown]
  - Drug dose omission [Unknown]
  - Drug ineffective [Unknown]
